FAERS Safety Report 4607915-X (Version None)
Quarter: 2005Q2

REPORT INFORMATION
  Report Type: 
  Country: None (occurrence: None)
  Receive Date: 20050303
  Receipt Date: 20041206
  Transmission Date: 20051028
  Serious: No
  Sender: FDA-Public Use
  Company Number: 210922

PATIENT
  Age: 45 Year
  Sex: Female
  Weight: 56.2 kg

DRUGS (4)
  1. XOLAIR [Suspect]
     Indication: ASTHMA
     Dosage: 300 MG, 1/MONTH, SUBCUTANEOUS
     Route: 058
     Dates: start: 20040722
  2. ANTIHISTAMINE NOS (ANTIHISTAMIEN NOS) [Concomitant]
  3. LEUKOTRIENE ANTAGONIST NOS (LEUKOTRIENE ANTAGONIST NOS) [Concomitant]
  4. BUDESONIDE [Concomitant]

REACTIONS (1)
  - INJECTION SITE NODULE [None]
